FAERS Safety Report 9277119 (Version 2)
Quarter: 2013Q2

REPORT INFORMATION
  Report Type: Spontaneous
  Country: BR (occurrence: BR)
  Receive Date: 20130507
  Receipt Date: 20130515
  Transmission Date: 20140414
  Serious: Yes (Other)
  Sender: FDA-Public Use
  Company Number: PHHY2013BR044710

PATIENT
  Age: 34 Year
  Sex: Male

DRUGS (3)
  1. RITALINA [Suspect]
     Indication: ATTENTION DEFICIT/HYPERACTIVITY DISORDER
     Dosage: 2 DF, DAILY
     Route: 048
  2. FLUOXETINE [Concomitant]
     Indication: ANTIDEPRESSANT THERAPY
     Dosage: 2 DF, A DAY
     Route: 048
     Dates: start: 201204
  3. CLONAZEPAM [Concomitant]
     Indication: MUSCLE RELAXANT THERAPY
     Dosage: 1 DF, A DAY (AS NEEDED WHEN THE PATIENT CANNOT SLEEP PROPERLY)
     Route: 048
     Dates: start: 201204

REACTIONS (8)
  - Depression [Recovered/Resolved]
  - Panic disorder [Recovered/Resolved]
  - Crying [Recovered/Resolved]
  - Irritability [Recovered/Resolved]
  - Fear [Recovered/Resolved]
  - Mania [Recovered/Resolved]
  - Attention deficit/hyperactivity disorder [Recovered/Resolved]
  - Performance status decreased [Not Recovered/Not Resolved]
